FAERS Safety Report 15658903 (Version 1)
Quarter: 2018Q4

REPORT INFORMATION
  Report Type: Report from Study
  Country: UG (occurrence: UG)
  Receive Date: 20181126
  Receipt Date: 20181126
  Transmission Date: 20190205
  Serious: Yes (Other)
  Sender: FDA-Public Use
  Company Number: UG-MYLANLABS-2018M1087634

PATIENT
  Sex: Female
  Weight: 3.1 kg

DRUGS (2)
  1. LAMIVUDINE, TENOFOVIR MYLAN [Suspect]
     Active Substance: LAMIVUDINE\TENOFOVIR
     Indication: HIV INFECTION
     Dosage: 1 DOSAGE FORM
     Route: 064
     Dates: start: 20180507
  2. TIVICAY [Suspect]
     Active Substance: DOLUTEGRAVIR SODIUM
     Indication: HIV INFECTION
     Dosage: 50 MICROGRAM, QD
     Route: 064
     Dates: start: 20180507

REACTIONS (2)
  - Foetal exposure during pregnancy [Recovered/Resolved]
  - Congenital umbilical hernia [Unknown]

NARRATIVE: CASE EVENT DATE: 2018
